FAERS Safety Report 21832833 (Version 2)
Quarter: 2023Q1

REPORT INFORMATION
  Report Type: Report from Study
  Country: TW (occurrence: TW)
  Receive Date: 20230106
  Receipt Date: 20230112
  Transmission Date: 20230417
  Serious: Yes (Hospitalization)
  Sender: FDA-Public Use
  Company Number: TW-GILEAD-2023-0611723

PATIENT
  Age: 75 Year
  Sex: Male
  Weight: 58 kg

DRUGS (43)
  1. SACITUZUMAB GOVITECAN-HZIY [Suspect]
     Active Substance: SACITUZUMAB GOVITECAN-HZIY
     Indication: Non-small cell lung cancer metastatic
     Dosage: 580 MG C1D1
     Route: 042
     Dates: start: 20221117, end: 20221117
  2. SACITUZUMAB GOVITECAN-HZIY [Suspect]
     Active Substance: SACITUZUMAB GOVITECAN-HZIY
     Dosage: 580 MG
     Route: 042
     Dates: start: 20221124, end: 20221124
  3. SACITUZUMAB GOVITECAN-HZIY [Suspect]
     Active Substance: SACITUZUMAB GOVITECAN-HZIY
     Dosage: 435 MG
     Route: 042
     Dates: start: 20221220, end: 20221220
  4. SACITUZUMAB GOVITECAN-HZIY [Suspect]
     Active Substance: SACITUZUMAB GOVITECAN-HZIY
     Dosage: 435 MG C2D8
     Route: 042
     Dates: start: 20221227, end: 20221227
  5. PEMBROLIZUMAB [Suspect]
     Active Substance: PEMBROLIZUMAB
     Indication: Non-small cell lung cancer metastatic
     Dosage: 200 MG
     Route: 042
     Dates: start: 20221117, end: 20221117
  6. PEMBROLIZUMAB [Suspect]
     Active Substance: PEMBROLIZUMAB
     Dosage: 200 MG
     Route: 042
     Dates: start: 20221220, end: 20221220
  7. CARBOPLATIN [Suspect]
     Active Substance: CARBOPLATIN
     Indication: Non-small cell lung cancer metastatic
     Dosage: 324.9 MG
     Route: 042
     Dates: start: 20221117, end: 20221117
  8. CARBOPLATIN [Suspect]
     Active Substance: CARBOPLATIN
     Dosage: 243.7 MG
     Route: 042
     Dates: start: 20221220, end: 20221220
  9. ACETYLCYSTEINE [Concomitant]
     Active Substance: ACETYLCYSTEINE
     Indication: Cough
     Dosage: UNK
     Route: 048
     Dates: start: 20221117, end: 20230103
  10. FILGRASTIM [Concomitant]
     Active Substance: FILGRASTIM
     Indication: Neutropenia
     Dosage: UNK
     Route: 058
     Dates: start: 20221128, end: 20221203
  11. FILGRASTIM [Concomitant]
     Active Substance: FILGRASTIM
     Dosage: UNK
     Route: 058
     Dates: start: 20221222, end: 20221224
  12. FILGRASTIM [Concomitant]
     Active Substance: FILGRASTIM
     Dosage: UNK
     Route: 058
     Dates: start: 20221224, end: 20221224
  13. FILGRASTIM [Concomitant]
     Active Substance: FILGRASTIM
     Dosage: UNK
     Route: 058
     Dates: start: 20221229, end: 20221229
  14. FILGRASTIM [Concomitant]
     Active Substance: FILGRASTIM
     Dosage: UNK
     Route: 058
     Dates: start: 20221231, end: 20221231
  15. ALBUTEROL\IPRATROPIUM [Concomitant]
     Active Substance: ALBUTEROL\IPRATROPIUM
     Indication: Pneumonia
     Dosage: UNK
     Dates: start: 20221129, end: 20221212
  16. DOMPERIDONE [Concomitant]
     Active Substance: DOMPERIDONE
     Dosage: UNK
     Route: 048
     Dates: start: 20221124, end: 20221207
  17. CIPROFLOXACIN [Concomitant]
     Active Substance: CIPROFLOXACIN
     Indication: Pneumonia
     Dosage: UNK
     Route: 041
     Dates: start: 20221130, end: 20221205
  18. CEFEPIME [Concomitant]
     Active Substance: CEFEPIME HYDROCHLORIDE
     Indication: Pneumonia
     Dosage: UNK
     Route: 041
     Dates: start: 20221205, end: 20221212
  19. MORPHINE [Concomitant]
     Active Substance: MORPHINE
     Indication: Pneumonia
     Dosage: UNK
     Route: 058
     Dates: start: 20221205, end: 20221205
  20. AMINO ACIDS\DEXTROSE\ELECTROLYTES NOS\SOYBEAN OIL [Concomitant]
     Active Substance: AMINO ACIDS\DEXTROSE\ELECTROLYTES NOS\SOYBEAN OIL
     Dosage: UNK
     Route: 042
     Dates: start: 20221130, end: 20221204
  21. TAMSULOSIN [Concomitant]
     Active Substance: TAMSULOSIN
     Indication: Benign prostatic hyperplasia
     Dosage: UNK
     Route: 048
     Dates: start: 20221204, end: 20221204
  22. TAMSULOSIN [Concomitant]
     Active Substance: TAMSULOSIN
     Dosage: UNK
     Route: 048
     Dates: start: 20221205, end: 20230103
  23. LOPERAMIDE [Concomitant]
     Active Substance: LOPERAMIDE
     Indication: Diarrhoea
     Dosage: UNK
     Route: 048
     Dates: start: 20221130, end: 20221202
  24. LOPERAMIDE [Concomitant]
     Active Substance: LOPERAMIDE
     Dosage: UNK
     Route: 048
     Dates: start: 20221220, end: 20221226
  25. BROTIZOLAM [Concomitant]
     Active Substance: BROTIZOLAM
     Indication: Insomnia
     Dosage: UNK
     Route: 048
     Dates: start: 20221204, end: 20221204
  26. PROCHLORPERAZINE [Concomitant]
     Active Substance: PROCHLORPERAZINE
     Indication: Vomiting
     Dosage: UNK
     Route: 041
     Dates: start: 20221129, end: 20221203
  27. PROCHLORPERAZINE [Concomitant]
     Active Substance: PROCHLORPERAZINE
     Indication: Large intestine infection
     Dosage: UNK
     Route: 030
     Dates: start: 20221231, end: 20221231
  28. PROCHLORPERAZINE [Concomitant]
     Active Substance: PROCHLORPERAZINE
     Dosage: UNK
     Route: 041
     Dates: start: 20221220, end: 20221220
  29. PROCHLORPERAZINE [Concomitant]
     Active Substance: PROCHLORPERAZINE
     Dosage: UNK
     Route: 041
     Dates: start: 20221227, end: 20221227
  30. PROCHLORPERAZINE [Concomitant]
     Active Substance: PROCHLORPERAZINE
     Dosage: UNK
     Route: 048
     Dates: start: 20221221, end: 20221223
  31. PROCHLORPERAZINE [Concomitant]
     Active Substance: PROCHLORPERAZINE
     Dosage: UNK
     Route: 048
     Dates: start: 20221228, end: 20221230
  32. METHYLPREDNISOLONE [Concomitant]
     Active Substance: METHYLPREDNISOLONE
     Indication: Pneumonia
     Dosage: UNK
     Route: 040
     Dates: start: 20221201, end: 20221203
  33. CODEINE [Concomitant]
     Active Substance: CODEINE
     Indication: Cough
     Dosage: UNK
     Route: 048
     Dates: start: 20221208, end: 20221229
  34. LORAZEPAM [Concomitant]
     Active Substance: LORAZEPAM
     Indication: Insomnia
     Dosage: UNK
     Route: 048
     Dates: start: 20221207, end: 20230103
  35. MEBHYDROLIN [Concomitant]
     Active Substance: MEBHYDROLIN
     Indication: Drug eruption
     Dosage: UNK
     Route: 048
     Dates: start: 20221212
  36. DIPHENHYDRAMINE [Concomitant]
     Active Substance: DIPHENHYDRAMINE
     Indication: Drug eruption
     Dosage: UNK
     Route: 040
     Dates: start: 20221212, end: 20221212
  37. DIPHENHYDRAMINE [Concomitant]
     Active Substance: DIPHENHYDRAMINE
     Dosage: UNK
     Route: 041
     Dates: start: 20221220, end: 20221220
  38. SPERSIN [NEOMYCIN SULFATE;POLYMYXIN B SULFATE] [Concomitant]
     Dosage: UNK
     Dates: start: 20221208, end: 20221208
  39. CEFIXIME [Concomitant]
     Active Substance: CEFIXIME
     Dosage: UNK
     Route: 048
     Dates: start: 20221212
  40. ALBUTEROL\IPRATROPIUM [Concomitant]
     Active Substance: ALBUTEROL\IPRATROPIUM
     Indication: Pneumonia
     Route: 055
     Dates: start: 20221129, end: 20221212
  41. COUGH MIXTURE A [Concomitant]
     Indication: Cough
     Route: 048
     Dates: start: 20221124, end: 20221207
  42. SPERSIN [NEOMYCIN;POLYMYXIN B SULFATE] [Concomitant]
     Indication: Prophylaxis
     Route: 061
     Dates: start: 20221208, end: 20221208
  43. SMECTITE DIOCTHAEDRYC [Concomitant]
     Indication: Large intestine infection
     Route: 048
     Dates: start: 20221231, end: 20221231

REACTIONS (1)
  - Diarrhoea [Recovered/Resolved]

NARRATIVE: CASE EVENT DATE: 20221231
